FAERS Safety Report 7115954-2 (Version None)
Quarter: 2010Q4

REPORT INFORMATION
  Report Type: 
  Country: None (occurrence: None)
  Receive Date: 20101122
  Receipt Date: 20101109
  Transmission Date: 20110411
  Serious: Yes (Other)
  Sender: FDA-Public Use
  Company Number: US-PFIZER INC-2010146664

PATIENT
  Sex: Female
  Weight: 56.7 kg

DRUGS (4)
  1. PRISTIQ [Suspect]
     Indication: DEPRESSION
     Dosage: 50 MG, 1X/DAY
     Dates: start: 20100501
  2. TETRAHYDROCANNABINOL [Interacting]
  3. ALCOHOL [Interacting]
  4. TAMOXIFEN CITRATE [Concomitant]
     Dosage: UNK

REACTIONS (4)
  - COGNITIVE DISORDER [None]
  - DISTURBANCE IN ATTENTION [None]
  - DRUG INTERACTION [None]
  - MEMORY IMPAIRMENT [None]
